FAERS Safety Report 13167260 (Version 1)
Quarter: 2017Q1

REPORT INFORMATION
  Report Type: Spontaneous
  Country: US (occurrence: US)
  Receive Date: 20170130
  Receipt Date: 20170130
  Transmission Date: 20170428
  Serious: Yes (Life-Threatening, Hospitalization, Other)
  Sender: FDA-Public Use
  Company Number: None

PATIENT
  Age: 68 Year
  Sex: Male
  Weight: 80 kg

DRUGS (4)
  1. DECADRON [Suspect]
     Active Substance: DEXAMETHASONE
  2. KENALOG [Suspect]
     Active Substance: TRIAMCINOLONE ACETONIDE
  3. SENSORCAINE [Suspect]
     Active Substance: BUPIVACAINE HYDROCHLORIDE
  4. OMNIPAQUE [Suspect]
     Active Substance: IOHEXOL

REACTIONS (4)
  - Scedosporium infection [None]
  - Pain [None]
  - Headache [None]
  - Meningitis fungal [None]

NARRATIVE: CASE EVENT DATE: 20161207
